FAERS Safety Report 13157367 (Version 1)
Quarter: 2017Q1

REPORT INFORMATION
  Report Type: Spontaneous
  Country: US (occurrence: US)
  Receive Date: 20170125
  Receipt Date: 20170125
  Transmission Date: 20170428
  Serious: No
  Sender: FDA-Public Use
  Company Number: None

PATIENT
  Age: 47 Year
  Sex: Female

DRUGS (2)
  1. OCTREOTIDE. [Suspect]
     Active Substance: OCTREOTIDE
     Indication: GASTROINTESTINAL HYPOMOTILITY
     Route: 058
     Dates: start: 20150902, end: 20170124
  2. OCTREOTIDE. [Suspect]
     Active Substance: OCTREOTIDE
     Indication: SCLERODERMA
     Route: 058
     Dates: start: 20150902, end: 20170124

REACTIONS (1)
  - Blood pressure decreased [None]

NARRATIVE: CASE EVENT DATE: 20170124
